FAERS Safety Report 25638322 (Version 1)
Quarter: 2025Q3

REPORT INFORMATION
  Report Type: Spontaneous
  Country: EU (occurrence: EU)
  Receive Date: 20250804
  Receipt Date: 20250804
  Transmission Date: 20251021
  Serious: Yes (Other)
  Sender: PFIZER
  Company Number: EU-GSK-AT2025GSK092190

PATIENT
  Age: 63 Year
  Sex: Female
  Weight: 55.7 kg

DRUGS (24)
  1. CABERGOLINE [Suspect]
     Active Substance: CABERGOLINE
     Indication: Parkinson^s disease
     Dates: start: 200108
  2. ROPINIROLE HYDROCHLORIDE [Suspect]
     Active Substance: ROPINIROLE HYDROCHLORIDE
     Indication: Parkinson^s disease
     Dates: start: 200210
  3. L DOPA [Suspect]
     Active Substance: LEVODOPA
     Indication: Parkinson^s disease
     Dates: start: 200210
  4. CARBIDOPA\LEVODOPA [Suspect]
     Active Substance: CARBIDOPA\LEVODOPA
     Indication: Parkinson^s disease
  5. CARBIDOPA\LEVODOPA [Suspect]
     Active Substance: CARBIDOPA\LEVODOPA
     Dates: start: 200108
  6. BOTULINUM TOXIN NOS [Suspect]
     Active Substance: BOTULINUM TOXIN NOS
     Indication: Borrelia infection
  7. BOTULINUM TOXIN NOS [Suspect]
     Active Substance: BOTULINUM TOXIN NOS
     Indication: Parkinson^s disease
  8. PRAMIPEXOLE [Suspect]
     Active Substance: PRAMIPEXOLE
     Indication: Parkinson^s disease
  9. PRAMIPEXOLE [Suspect]
     Active Substance: PRAMIPEXOLE
     Dates: start: 200108
  10. PERGOLIDE [Suspect]
     Active Substance: PERGOLIDE
     Indication: Parkinson^s disease
  11. AMANTADINE [Suspect]
     Active Substance: AMANTADINE
     Indication: Parkinson^s disease
  12. ENTACAPONE [Suspect]
     Active Substance: ENTACAPONE
     Indication: Parkinson^s disease
     Dates: start: 200210
  13. HYDROCHLOROTHIAZIDE [Concomitant]
     Active Substance: HYDROCHLOROTHIAZIDE
     Indication: Dilated cardiomyopathy
  14. HYDROCHLOROTHIAZIDE [Concomitant]
     Active Substance: HYDROCHLOROTHIAZIDE
     Dates: start: 200210
  15. BISOPROLOL [Concomitant]
     Active Substance: BISOPROLOL
  16. PHENPROCOUMON [Concomitant]
     Active Substance: PHENPROCOUMON
     Indication: Thrombosis prophylaxis
  17. ENALAPRIL [Concomitant]
     Active Substance: ENALAPRIL
     Indication: Dilated cardiomyopathy
  18. ENALAPRIL [Concomitant]
     Active Substance: ENALAPRIL
     Dates: start: 200210
  19. METOPROLOL [Concomitant]
     Active Substance: METOPROLOL
     Dates: start: 200210
  20. CLOPIDOGREL [Concomitant]
     Active Substance: CLOPIDOGREL BISULFATE
     Dates: start: 200210
  21. VENLAFAXINE [Concomitant]
     Active Substance: VENLAFAXINE HYDROCHLORIDE
     Dates: start: 200210
  22. ESOMEPRAZOLE [Concomitant]
     Active Substance: ESOMEPRAZOLE
     Dates: start: 200210
  23. ALENDRONIC ACID [Concomitant]
     Active Substance: ALENDRONIC ACID
     Dates: start: 200210
  24. FUROSEMIDE [Concomitant]
     Active Substance: FUROSEMIDE
     Dates: start: 200210

REACTIONS (2)
  - Dropped head syndrome [Unknown]
  - Therapy partial responder [Unknown]
